FAERS Safety Report 17796617 (Version 3)
Quarter: 2020Q2

REPORT INFORMATION
  Report Type: Spontaneous
  Country: US (occurrence: US)
  Receive Date: 20200518
  Receipt Date: 20200601
  Transmission Date: 20200714
  Serious: Yes (Hospitalization, Other)
  Sender: FDA-Public Use
  Company Number: US-AUROBINDO-AUR-APL-2020-024920

PATIENT
  Age: 69 Year
  Sex: Female
  Weight: 56 kg

DRUGS (16)
  1. DEXAMETHASONE. [Suspect]
     Active Substance: DEXAMETHASONE
     Indication: EAR DISCOMFORT
     Dosage: UNK
     Route: 065
  2. FOSAMAX [Concomitant]
     Active Substance: ALENDRONATE SODIUM
     Indication: PRODUCT USED FOR UNKNOWN INDICATION
     Dosage: UNK
     Route: 065
  3. CALCIUM [Concomitant]
     Active Substance: CALCIUM
     Indication: PRODUCT USED FOR UNKNOWN INDICATION
     Dosage: UNK
     Route: 065
  4. LIPITOR [Concomitant]
     Active Substance: ATORVASTATIN CALCIUM
     Indication: PRODUCT USED FOR UNKNOWN INDICATION
     Dosage: UNK
     Route: 065
  5. ZOLOFT [Concomitant]
     Active Substance: SERTRALINE HYDROCHLORIDE
     Indication: PRODUCT USED FOR UNKNOWN INDICATION
     Dosage: UNK
     Route: 065
  6. CIPROFLOXACIN. [Suspect]
     Active Substance: CIPROFLOXACIN
     Indication: CYSTITIS
     Dosage: UNK
     Route: 048
  7. LIBRAX [Concomitant]
     Active Substance: CHLORDIAZEPOXIDE HYDROCHLORIDE\CLIDINIUM BROMIDE
     Indication: PRODUCT USED FOR UNKNOWN INDICATION
     Dosage: UNK
     Route: 065
  8. PRILOSEC [Concomitant]
     Active Substance: OMEPRAZOLE MAGNESIUM
     Indication: PRODUCT USED FOR UNKNOWN INDICATION
     Dosage: UNK
     Route: 065
  9. VITAMIN D3 [Concomitant]
     Active Substance: CHOLECALCIFEROL
     Indication: PRODUCT USED FOR UNKNOWN INDICATION
     Dosage: UNK
     Route: 065
  10. CIPROFLOXACIN. [Suspect]
     Active Substance: CIPROFLOXACIN
     Indication: DIARRHOEA
  11. AMOXICILLIN. [Suspect]
     Active Substance: AMOXICILLIN
     Indication: SINUS CONGESTION
     Dosage: UNK
     Route: 048
     Dates: start: 20191223
  12. SILVER [Concomitant]
     Active Substance: SILVER
     Indication: PRODUCT USED FOR UNKNOWN INDICATION
     Dosage: UNK
     Route: 065
  13. VITAMIN E [Concomitant]
     Active Substance: .ALPHA.-TOCOPHEROL
     Indication: PRODUCT USED FOR UNKNOWN INDICATION
     Dosage: UNK
     Route: 065
  14. PRIMROSE OIL [Concomitant]
     Indication: PRODUCT USED FOR UNKNOWN INDICATION
     Dosage: UNK
     Route: 065
  15. GLUCOSAMINE CHONDROITIN [Concomitant]
     Active Substance: CHONDROITIN SULFATE (BOVINE)\GLUCOSAMINE HYDROCHLORIDE
     Indication: PRODUCT USED FOR UNKNOWN INDICATION
     Dosage: UNK
     Route: 065
  16. BIOTIN [Concomitant]
     Active Substance: BIOTIN
     Indication: PRODUCT USED FOR UNKNOWN INDICATION
     Dosage: UNK
     Route: 065

REACTIONS (10)
  - Clostridium difficile colitis [Recovered/Resolved]
  - Weight decreased [Recovered/Resolved]
  - Vomiting [Recovered/Resolved]
  - Ear discomfort [Recovered/Resolved]
  - Malaise [Recovered/Resolved]
  - Cystitis [Recovered/Resolved]
  - Diarrhoea [Recovered/Resolved]
  - Chills [Recovered/Resolved]
  - Food poisoning [Recovered/Resolved]
  - Dehydration [Recovered/Resolved]

NARRATIVE: CASE EVENT DATE: 20200211
